FAERS Safety Report 22093295 (Version 7)
Quarter: 2023Q2

REPORT INFORMATION
  Report Type: Report from Study
  Country: US (occurrence: US)
  Receive Date: 20230314
  Receipt Date: 20230608
  Transmission Date: 20230721
  Serious: Yes (Other)
  Sender: FDA-Public Use
  Company Number: US-JAZZ PHARMACEUTICALS-2023-US-001348

PATIENT
  Sex: Female

DRUGS (5)
  1. XYWAV [Suspect]
     Active Substance: CALCIUM OXYBATE\MAGNESIUM OXYBATE\POTASSIUM OXYBATE\SODIUM OXYBATE
     Indication: Narcolepsy
     Dosage: 3 GRAM, BID
  2. XYWAV [Suspect]
     Active Substance: CALCIUM OXYBATE\MAGNESIUM OXYBATE\POTASSIUM OXYBATE\SODIUM OXYBATE
     Indication: Cataplexy
     Dosage: 2.5 GRAM, BID
  3. XYWAV [Suspect]
     Active Substance: CALCIUM OXYBATE\MAGNESIUM OXYBATE\POTASSIUM OXYBATE\SODIUM OXYBATE
     Indication: Somnolence
     Dosage: 2.25 GRAM, BID
  4. SPIRONOLACTONE [Concomitant]
     Active Substance: SPIRONOLACTONE
     Indication: Product used for unknown indication
     Dosage: UNK
     Dates: start: 20230220
  5. LO LOESTRIN FE [Concomitant]
     Active Substance: ETHINYL ESTRADIOL\NORETHINDRONE ACETATE
     Indication: Product used for unknown indication
     Dosage: 1-10
     Dates: start: 20230316

REACTIONS (19)
  - Surgery [Unknown]
  - Acne [Unknown]
  - Anxiety [Unknown]
  - Tension headache [Unknown]
  - Abdominal pain upper [Unknown]
  - Muscular weakness [Unknown]
  - Dyspnoea [Unknown]
  - Nausea [Unknown]
  - Brain fog [Unknown]
  - Hyperhidrosis [Unknown]
  - Alopecia [Unknown]
  - Emergency care [Unknown]
  - Lung disorder [Unknown]
  - Tremor [Unknown]
  - Presyncope [Unknown]
  - Chest pain [Unknown]
  - Emotional disorder [Unknown]
  - Withdrawal syndrome [Unknown]
  - Palpitations [Unknown]
